FAERS Safety Report 12969260 (Version 1)
Quarter: 2016Q4

REPORT INFORMATION
  Report Type: Spontaneous
  Country: AT (occurrence: AT)
  Receive Date: 20161123
  Receipt Date: 20161123
  Transmission Date: 20170207
  Serious: Yes (Hospitalization)
  Sender: FDA-Public Use
  Company Number: AT-TEVA-712079ISR

PATIENT
  Age: 69 Year
  Sex: Male

DRUGS (3)
  1. KETANEST S 25MG/ML [Suspect]
     Active Substance: ESKETAMINE
     Indication: SEDATION
     Dosage: 12.5 MILLIGRAM DAILY; FRACTIONAL DURING GASTROSCOPY 08:13 A.M. UNTIL 08:23 A.M.
     Route: 042
     Dates: start: 20160930, end: 20160930
  2. DORMICUM [Suspect]
     Active Substance: MIDAZOLAM\MIDAZOLAM HYDROCHLORIDE
     Indication: SEDATION
     Dosage: 2 MILLIGRAM DAILY; FRACTIONAL DURING GASTROSCOPY 08:13 A.M. UNTIL 08:23 A.M.
     Route: 042
     Dates: start: 20160930, end: 20160930
  3. PROPOFOL RATIOHPHARM 10MG/ML [Suspect]
     Active Substance: PROPOFOL
     Indication: SEDATION
     Dosage: 50 MILLIGRAM DAILY; FRACTIONAL DURING GASTROSCOPY 08:13 A.M. UNTIL 08:23 A.M.
     Route: 042
     Dates: start: 20160930, end: 20160930

REACTIONS (3)
  - Pyrexia [Unknown]
  - Chills [Unknown]
  - C-reactive protein increased [Unknown]

NARRATIVE: CASE EVENT DATE: 20160930
